FAERS Safety Report 26155674 (Version 1)
Quarter: 2025Q4

REPORT INFORMATION
  Report Type: Spontaneous
  Country: IR (occurrence: IR)
  Receive Date: 20251215
  Receipt Date: 20251215
  Transmission Date: 20260118
  Serious: No
  Sender: ALKEM
  Company Number: None

PATIENT
  Age: 35 Year
  Sex: Female

DRUGS (2)
  1. TACROLIMUS [Suspect]
     Active Substance: TACROLIMUS
     Indication: Porokeratosis
     Dosage: UNK, BID (OINTMENT)
     Route: 061
  2. ISOTRETINOIN [Suspect]
     Active Substance: ISOTRETINOIN
     Indication: Porokeratosis
     Dosage: 0.3 MILLIGRAM/KILOGRAM, QD
     Route: 048

REACTIONS (2)
  - Dry skin [Unknown]
  - Lip dry [Unknown]
